FAERS Safety Report 9995652 (Version 2)
Quarter: 2014Q2

REPORT INFORMATION
  Report Type: Spontaneous
  Country: OM (occurrence: OM)
  Receive Date: 20140311
  Receipt Date: 20140613
  Transmission Date: 20141212
  Serious: Yes (Life-Threatening, Hospitalization)
  Sender: FDA-Public Use
  Company Number: PHHY2014OM028725

PATIENT
  Age: 67 Year
  Sex: Female
  Weight: 73.4 kg

DRUGS (6)
  1. NILOTINIB [Suspect]
     Indication: CHRONIC MYELOID LEUKAEMIA
     Dosage: 300 MG, BID
     Route: 048
     Dates: start: 20110117, end: 20131214
  2. ROSUVASTATIN [Concomitant]
     Indication: LIPIDS INCREASED
     Dosage: 10 MG, DAY
     Route: 048
     Dates: start: 20120825
  3. GLICLAZIDE [Concomitant]
     Indication: DIABETES MELLITUS
     Dosage: 60 MG
     Route: 048
     Dates: start: 20121125
  4. SITAGLIPTIN [Concomitant]
     Indication: DIABETES MELLITUS
     Dosage: 100 MG
     Route: 048
     Dates: start: 20120520
  5. ESOMEPRAZOLE [Concomitant]
     Indication: GASTRITIS
     Dosage: 20 MG, DAY
     Route: 048
     Dates: start: 20100328
  6. PREGABALIN [Concomitant]
     Indication: NEUROPATHY PERIPHERAL
     Dosage: 75 MG, DAY
     Route: 048
     Dates: start: 20130520

REACTIONS (5)
  - Myocardial ischaemia [Unknown]
  - Myocardial infarction [Recovering/Resolving]
  - Chest pain [Unknown]
  - Chest discomfort [Unknown]
  - Pain in extremity [Unknown]
